FAERS Safety Report 20246468 (Version 1)
Quarter: 2021Q4

REPORT INFORMATION
  Report Type: Spontaneous
  Country: US (occurrence: US)
  Receive Date: 20211229
  Receipt Date: 20211229
  Transmission Date: 20220303
  Serious: Yes (Death)
  Sender: FDA-Public Use
  Company Number: US-TEVA-2021-US-1994753

PATIENT
  Sex: Female

DRUGS (5)
  1. DIAZEPAM [Suspect]
     Active Substance: DIAZEPAM
     Route: 065
  2. PROPOXYPHENE [Suspect]
     Active Substance: PROPOXYPHENE
     Route: 065
  3. NORPROPOXYPHENE [Suspect]
     Active Substance: NORPROPOXYPHENE
     Route: 065
  4. MEPROBAMATE [Suspect]
     Active Substance: MEPROBAMATE
     Route: 065
  5. NORDAZEPAM [Suspect]
     Active Substance: NORDAZEPAM
     Route: 065

REACTIONS (1)
  - Accidental overdose [Fatal]
